FAERS Safety Report 13776184 (Version 2)
Quarter: 2017Q4

REPORT INFORMATION
  Report Type: Spontaneous
  Country: US (occurrence: US)
  Receive Date: 20170721
  Receipt Date: 20171010
  Transmission Date: 20180320
  Serious: No
  Sender: FDA-Public Use
  Company Number: US-009507513-1707USA006189

PATIENT
  Age: 35 Year
  Sex: Female
  Weight: 74.38 kg

DRUGS (2)
  1. NEXPLANON [Suspect]
     Active Substance: ETONOGESTREL
     Indication: CONTRACEPTION
     Dosage: 1 DF, UNK; 68 MG
     Route: 059
     Dates: start: 20170621, end: 20170621
  2. NEXPLANON [Suspect]
     Active Substance: ETONOGESTREL
     Dosage: 1 DF, UNK; 68 MG
     Route: 059
     Dates: start: 20170621, end: 20170621

REACTIONS (5)
  - Device expulsion [Unknown]
  - Device malfunction [Unknown]
  - Complication of device insertion [Unknown]
  - No adverse event [Unknown]
  - Device deployment issue [Unknown]

NARRATIVE: CASE EVENT DATE: 20170621
